FAERS Safety Report 5744163-4 (Version None)
Quarter: 2008Q2

REPORT INFORMATION
  Report Type: 
  Country: None (occurrence: None)
  Receive Date: 20080520
  Receipt Date: 20080514
  Transmission Date: 20081010
  Serious: Yes (Hospitalization)
  Sender: FDA-Public Use
  Company Number: ES-ABBOTT-08P-144-0451706-00

PATIENT
  Age: 38 Year
  Sex: Female

DRUGS (1)
  1. REDUCTIL [Suspect]
     Indication: OBESITY
     Route: 048
     Dates: start: 20080311, end: 20080407

REACTIONS (2)
  - HEPATITIS ACUTE [None]
  - PANCREATITIS ACUTE [None]
